FAERS Safety Report 24038262 (Version 1)
Quarter: 2024Q3

REPORT INFORMATION
  Report Type: Spontaneous
  Country: US (occurrence: US)
  Receive Date: 20240702
  Receipt Date: 20240702
  Transmission Date: 20241017
  Serious: Yes (Hospitalization)
  Sender: Steriscience PTE
  Company Number: US-STERISCIENCE B.V.-2024-ST-000917

PATIENT
  Age: 71 Year
  Sex: Male

DRUGS (3)
  1. MYCOPHENOLATE MOFETIL [Suspect]
     Active Substance: MYCOPHENOLATE MOFETIL
     Indication: Organising pneumonia
     Dosage: UNK
     Route: 065
  2. MYCOPHENOLATE MOFETIL [Suspect]
     Active Substance: MYCOPHENOLATE MOFETIL
     Dosage: 1500 MILLIGRAM, BID
     Route: 065
  3. PREDNISONE [Concomitant]
     Active Substance: PREDNISONE
     Indication: Organising pneumonia
     Dosage: HIGH DOSE
     Route: 065

REACTIONS (1)
  - Drug ineffective for unapproved indication [Unknown]
